FAERS Safety Report 12643831 (Version 2)
Quarter: 2018Q4

REPORT INFORMATION
  Report Type: Report from Study
  Country: DE (occurrence: DE)
  Receive Date: 20160811
  Receipt Date: 20181218
  Transmission Date: 20190204
  Serious: Yes (Hospitalization)
  Sender: FDA-Public Use
  Company Number: DE-BIOGEN-2016BI00276385

PATIENT
  Age: 29 Year
  Sex: Female
  Weight: 110 kg

DRUGS (5)
  1. VIGANTOLETTEN [Concomitant]
     Active Substance: CHOLECALCIFEROL
     Indication: VITAMIN D DEFICIENCY
     Dosage: 1000 (UNKNOWN DOSING UNIT)
     Route: 048
     Dates: start: 20151217
  2. METOHEXAL [Concomitant]
     Active Substance: METOPROLOL
     Indication: HYPERTENSION
     Route: 048
     Dates: start: 2010
  3. TYSABRI [Suspect]
     Active Substance: NATALIZUMAB
     Indication: MULTIPLE SCLEROSIS
     Route: 042
     Dates: start: 20110420
  4. MINISTON [Concomitant]
     Indication: ORAL CONTRACEPTION
     Route: 048
     Dates: start: 2010
  5. VENLAFAXINE [Concomitant]
     Active Substance: VENLAFAXINE HYDROCHLORIDE
     Indication: DEPRESSION
     Route: 048
     Dates: start: 201112

REACTIONS (1)
  - Dermatitis atopic [Recovered/Resolved with Sequelae]

NARRATIVE: CASE EVENT DATE: 20160616
